FAERS Safety Report 9254971 (Version 1)
Quarter: 2013Q2

REPORT INFORMATION
  Report Type: Spontaneous
  Country: US (occurrence: US)
  Receive Date: 20130425
  Receipt Date: 20130425
  Transmission Date: 20140414
  Serious: No
  Sender: FDA-Public Use
  Company Number: US-009507513-1304USA015236

PATIENT
  Sex: Female

DRUGS (1)
  1. NEXPLANON [Suspect]
     Dosage: 1 ROD UP TO THREE YEARS
     Route: 059
     Dates: start: 201204

REACTIONS (3)
  - Adverse event [Unknown]
  - Unevaluable event [Unknown]
  - Metrorrhagia [Unknown]
